FAERS Safety Report 25023843 (Version 3)
Quarter: 2025Q1

REPORT INFORMATION
  Report Type: Spontaneous
  Country: RU (occurrence: RU)
  Receive Date: 20250228
  Receipt Date: 20250313
  Transmission Date: 20250409
  Serious: Yes (Other)
  Sender: SANOFI AVENTIS
  Company Number: RU-SA-2025SA059551

PATIENT
  Age: 18 Year
  Sex: Male
  Weight: 57 kg

DRUGS (2)
  1. APIDRA SOLOSTAR [Suspect]
     Active Substance: INSULIN GLULISINE
     Indication: Diabetes mellitus
     Dosage: 35 IU/ML, QD
     Route: 058
     Dates: start: 20250204, end: 20250213
  2. INSULIN ASPART [Suspect]
     Active Substance: INSULIN ASPART
     Indication: Diabetes mellitus
     Dosage: 35 IU/ML, QD
     Route: 058
     Dates: start: 20241222, end: 20250203

REACTIONS (1)
  - Diabetic ketosis [Recovered/Resolved with Sequelae]

NARRATIVE: CASE EVENT DATE: 20241222
